FAERS Safety Report 15127240 (Version 1)
Quarter: 2018Q3

REPORT INFORMATION
  Report Type: Spontaneous
  Country: GB (occurrence: GB)
  Receive Date: 20180710
  Receipt Date: 20180710
  Transmission Date: 20181010
  Serious: Yes (Disabling)
  Sender: FDA-Public Use
  Company Number: GB-TEVA-2018-GB-923974

PATIENT
  Age: 11 Year
  Sex: Female

DRUGS (7)
  1. LAXIDO [Concomitant]
     Active Substance: POLYETHYLENE GLYCOL 3350\POTASSIUM CHLORIDE\SODIUM BICARBONATE\SODIUM CHLORIDE
  2. CITRAMAG [Concomitant]
  3. CITALOPRAM HYDROCHLORIDE [Suspect]
     Active Substance: CITALOPRAM HYDROCHLORIDE
     Indication: DEPRESSION
     Route: 048
     Dates: start: 20171110, end: 20171117
  4. CITALOPRAM HYDROCHLORIDE [Suspect]
     Active Substance: CITALOPRAM HYDROCHLORIDE
     Route: 048
     Dates: start: 20171118
  5. SODIUM PHOSPHATE [Concomitant]
     Active Substance: SODIUM PHOSPHATE
  6. FLUOXETINE [Concomitant]
     Active Substance: FLUOXETINE HYDROCHLORIDE
     Dates: end: 20171103
  7. BISACODYL. [Concomitant]
     Active Substance: BISACODYL

REACTIONS (2)
  - Urinary incontinence [Not Recovered/Not Resolved]
  - Loss of bladder sensation [Unknown]

NARRATIVE: CASE EVENT DATE: 20171117
